FAERS Safety Report 5142348-1 (Version None)
Quarter: 2006Q4

REPORT INFORMATION
  Report Type: 
  Country: None (occurrence: None)
  Receive Date: 20061102
  Receipt Date: 20061025
  Transmission Date: 20070319
  Serious: Yes (Other)
  Sender: FDA-Public Use
  Company Number: BR-GLAXOSMITHKLINE-A0625411A

PATIENT
  Age: 77 Year
  Sex: Female
  Weight: 78 kg

DRUGS (9)
  1. SERETIDE [Suspect]
     Indication: CHRONIC OBSTRUCTIVE PULMONARY DISEASE
     Dosage: 2PUFF TWICE PER DAY
     Route: 055
     Dates: start: 20061001
  2. AMARYL [Concomitant]
     Dates: start: 19990101
  3. REMERON [Concomitant]
     Dates: start: 20020101
  4. CITALOPRAM HYDROBROMIDE [Concomitant]
     Dosage: 1.5TAB PER DAY
     Route: 048
     Dates: start: 20020101
  5. RIVOTRIL [Concomitant]
     Dates: start: 20020101
  6. CLORANA [Concomitant]
     Dates: start: 20060901
  7. OMEPRAZOLE [Concomitant]
     Dates: start: 20060901
  8. MICOSTATIN [Concomitant]
     Dates: start: 20060901
  9. MITOMYCIN [Concomitant]
     Indication: BLADDER CANCER
     Dates: start: 20060401

REACTIONS (2)
  - DIABETES MELLITUS [None]
  - PHARMACEUTICAL PRODUCT COMPLAINT [None]
